FAERS Safety Report 26068882 (Version 1)
Quarter: 2025Q4

REPORT INFORMATION
  Report Type: Spontaneous
  Country: KR (occurrence: KR)
  Receive Date: 20251120
  Receipt Date: 20251120
  Transmission Date: 20260117
  Serious: Yes (Other)
  Sender: GLAXOSMITHKLINE
  Company Number: KR-GSK-KR2025APC146246

PATIENT
  Age: 41 Year
  Sex: Female

DRUGS (4)
  1. JEMPERLI [Suspect]
     Active Substance: DOSTARLIMAB-GXLY
     Indication: Product used for unknown indication
     Dosage: UNK (SALVAGE THERAPY: DOSTARLIMAB + PACLITAXEL + CARBOPLATIN ? 6 CYCLES)
  2. JEMPERLI [Suspect]
     Active Substance: DOSTARLIMAB-GXLY
     Dosage: UNK (MAINTENANCE THERAPY: DOSTARLIMAB ? 4 CYCLES
  3. PACLITAXEL [Suspect]
     Active Substance: PACLITAXEL
     Indication: Product used for unknown indication
     Dosage: UNK (SALVAGE THERAPY: DOSTARLIMAB + PACLITAXEL + CARBOPLATIN ? 6 CYCLES)
  4. CARBOPLATIN [Suspect]
     Active Substance: CARBOPLATIN
     Indication: Product used for unknown indication
     Dosage: UNK (SALVAGE THERAPY: DOSTARLIMAB + PACLITAXEL + CARBOPLATIN ? 6 CYCLES)

REACTIONS (1)
  - Haematotoxicity [Unknown]
